FAERS Safety Report 7141839-1 (Version None)
Quarter: 2010Q4

REPORT INFORMATION
  Report Type: 
  Country: None (occurrence: None)
  Receive Date: 20101207
  Receipt Date: 20101125
  Transmission Date: 20110411
  Serious: Yes (Other)
  Sender: FDA-Public Use
  Company Number: PHHY2010DE80630

PATIENT
  Age: 87 Year
  Sex: Male

DRUGS (3)
  1. EXELON [Suspect]
     Indication: DEMENTIA
     Dosage: 4.6 MG/24HR
     Route: 062
     Dates: start: 20101106, end: 20101123
  2. TARGIN [Concomitant]
     Indication: NEURALGIA
     Dosage: 20-0-40
  3. LYRICA [Concomitant]
     Indication: NEURALGIA
     Dosage: 150 MG, QD

REACTIONS (6)
  - ASTHENIA [None]
  - CONFUSIONAL STATE [None]
  - CONTUSION [None]
  - FALL [None]
  - HALLUCINATION [None]
  - SOMNOLENCE [None]
